FAERS Safety Report 15973682 (Version 1)
Quarter: 2019Q1

REPORT INFORMATION
  Report Type: Spontaneous
  Country: US (occurrence: US)
  Receive Date: 20190217
  Receipt Date: 20190217
  Transmission Date: 20190418
  Serious: No
  Sender: FDA-Public Use
  Company Number: US-TEVA-2019-US-1013606

PATIENT
  Sex: Female

DRUGS (2)
  1. AJOVY [Suspect]
     Active Substance: FREMANEZUMAB-VFRM
     Indication: MIGRAINE
     Dosage: ONE INJECTION MONTHLY
     Dates: end: 201902
  2. MIRENA [Concomitant]
     Active Substance: LEVONORGESTREL
     Indication: CONTRACEPTION
     Dates: start: 2017

REACTIONS (3)
  - Rash [Unknown]
  - Menstruation irregular [Unknown]
  - Urticaria [Unknown]

NARRATIVE: CASE EVENT DATE: 201902
